FAERS Safety Report 18154671 (Version 3)
Quarter: 2020Q4

REPORT INFORMATION
  Report Type: Spontaneous
  Country: TR (occurrence: TR)
  Receive Date: 20200817
  Receipt Date: 20201029
  Transmission Date: 20210113
  Serious: Yes (Death, Other)
  Sender: FDA-Public Use
  Company Number: TR-BRISTOL-MYERS SQUIBB COMPANY-BMS-2020-065944

PATIENT
  Age: 71 Year
  Sex: Male

DRUGS (1)
  1. OPDIVO [Suspect]
     Active Substance: NIVOLUMAB
     Indication: THROAT CANCER
     Dosage: ^40 AND 100 MG^
     Route: 065
     Dates: start: 2020

REACTIONS (1)
  - Death [Fatal]
